FAERS Safety Report 5826972-6 (Version None)
Quarter: 2008Q3

REPORT INFORMATION
  Report Type: 
  Country: None (occurrence: None)
  Receive Date: 20080730
  Receipt Date: 20080723
  Transmission Date: 20090109
  Serious: Yes (Disabling)
  Sender: FDA-Public Use
  Company Number: CH-JNJFOC-20080407495

PATIENT
  Age: 36 Year
  Sex: Male
  Weight: 80 kg

DRUGS (7)
  1. RISPERDAL [Suspect]
     Route: 048
  2. RISPERDAL [Suspect]
     Indication: BIPOLAR DISORDER
     Route: 048
  3. RISPERDAL CONSTA [Suspect]
     Route: 030
  4. RISPERDAL CONSTA [Suspect]
     Indication: BIPOLAR DISORDER
     Route: 030
  5. PRIADEL [Concomitant]
     Indication: BIPOLAR DISORDER
     Route: 048
  6. TEMESTA [Concomitant]
     Indication: BIPOLAR DISORDER
     Route: 042
  7. HALOPERIDOL [Concomitant]
     Indication: ABNORMAL BEHAVIOUR
     Route: 065

REACTIONS (1)
  - DIABETES MELLITUS [None]
